FAERS Safety Report 6898391-5 (Version None)
Quarter: 2010Q3

REPORT INFORMATION
  Report Type: 
  Country: None (occurrence: None)
  Receive Date: 20100802
  Receipt Date: 20071011
  Transmission Date: 20110219
  Serious: Yes (Other)
  Sender: FDA-Public Use
  Company Number: US-PFIZER INC-2007086388

PATIENT
  Sex: Male
  Weight: 76.2 kg

DRUGS (5)
  1. LYRICA [Suspect]
     Indication: NERVE ROOT LESION
     Dates: start: 20070801
  2. DIOVAN HCT [Concomitant]
  3. TRICOR [Concomitant]
  4. WARFARIN SODIUM [Concomitant]
  5. AMITIZA [Concomitant]

REACTIONS (9)
  - BLOOD GLUCOSE DECREASED [None]
  - BLOOD POTASSIUM DECREASED [None]
  - DRY MOUTH [None]
  - INSOMNIA [None]
  - MUSCLE TIGHTNESS [None]
  - NIGHT SWEATS [None]
  - PERSONALITY CHANGE [None]
  - VISION BLURRED [None]
  - WEIGHT INCREASED [None]
